FAERS Safety Report 14995119 (Version 1)
Quarter: 2018Q2

REPORT INFORMATION
  Report Type: Spontaneous
  Country: DK (occurrence: DK)
  Receive Date: 20180611
  Receipt Date: 20180611
  Transmission Date: 20180711
  Serious: Yes (Hospitalization, Disabling)
  Sender: FDA-Public Use
  Company Number: PHHY2018DK018304

PATIENT
  Age: 79 Year
  Sex: Female

DRUGS (6)
  1. ACLASTA [Suspect]
     Active Substance: ZOLEDRONIC ACID
     Indication: OSTEOPOROSIS
     Dosage: 5 MG, Q12MO (5 MG/100 ML)
     Route: 042
     Dates: start: 20130725
  2. ACLASTA [Suspect]
     Active Substance: ZOLEDRONIC ACID
     Dosage: 5 MG, Q12MO (5 MG/100 ML)
     Route: 042
     Dates: start: 20170126
  3. ALENDRONAT AUROBINDO [Suspect]
     Active Substance: ALENDRONATE SODIUM
     Dosage: 70 MG, QD
     Route: 048
     Dates: start: 2010
  4. PROLIA [Suspect]
     Active Substance: DENOSUMAB
     Indication: OSTEOPOROSIS
     Dosage: 60 MG (60 MG/ML (EVERY 6 MONTHS))
     Route: 058
     Dates: start: 2012
  5. PROLIA [Suspect]
     Active Substance: DENOSUMAB
     Dosage: 60 MG (60 MG/ML (EVERY 6 MONTHS))
     Route: 058
     Dates: start: 2017
  6. ALENDRONAT AUROBINDO [Suspect]
     Active Substance: ALENDRONATE SODIUM
     Indication: OSTEOPOROSIS
     Dosage: 70 MG, QD
     Route: 048
     Dates: start: 2003

REACTIONS (3)
  - Impaired healing [Not Recovered/Not Resolved]
  - Osteonecrosis of jaw [Not Recovered/Not Resolved]
  - Calcinosis [Not Recovered/Not Resolved]

NARRATIVE: CASE EVENT DATE: 20171227
